FAERS Safety Report 9296214 (Version 1)
Quarter: 2013Q2

REPORT INFORMATION
  Report Type: Spontaneous
  Country: FR (occurrence: FR)
  Receive Date: 20130517
  Receipt Date: 20130517
  Transmission Date: 20140414
  Serious: Yes (Hospitalization, Other)
  Sender: FDA-Public Use
  Company Number: FR-BRISTOL-MYERS SQUIBB COMPANY-18888586

PATIENT
  Age: 78 Year
  Sex: Female

DRUGS (12)
  1. ELISOR TABS 20 MG [Suspect]
     Indication: DYSLIPIDAEMIA
     Route: 048
     Dates: start: 2000, end: 201104
  2. CRESTOR [Suspect]
     Indication: DYSLIPIDAEMIA
     Route: 048
     Dates: start: 201104, end: 201105
  3. TAREG [Suspect]
     Indication: HYPERTENSION
     Route: 048
     Dates: start: 2008, end: 201110
  4. OLMETEC [Suspect]
     Indication: HYPERTENSION
     Dosage: FILM COATED TABLET
     Route: 048
     Dates: start: 201110, end: 201112
  5. PRITOR [Suspect]
     Indication: HYPERTENSION
     Route: 048
     Dates: start: 201112, end: 20130113
  6. CORDARONE [Concomitant]
     Indication: ATRIAL FIBRILLATION
     Dosage: SCORED TABLET
     Route: 048
     Dates: start: 2000
  7. VITAMIN B12 [Concomitant]
     Route: 030
     Dates: start: 1990
  8. SOTALEX TABS 80 MG [Concomitant]
     Dosage: 1DF: 1.5TABLET
     Route: 048
     Dates: start: 2000
  9. FLODIL [Concomitant]
     Dosage: S.R. COATED TABLET
     Dates: start: 1996
  10. KARDEGIC [Concomitant]
     Dosage: POWDER
     Route: 048
     Dates: start: 2000
  11. LEXOMIL [Concomitant]
     Indication: INSOMNIA
     Dosage: 1DF:0.25TABLET
     Route: 048
     Dates: start: 2001
  12. LEVOTHYROX [Concomitant]
     Indication: THYROID DISORDER
     Route: 048
     Dates: start: 2000

REACTIONS (3)
  - Diarrhoea [Recovering/Resolving]
  - Colitis microscopic [Recovering/Resolving]
  - Weight decreased [Unknown]
